FAERS Safety Report 4367847-1 (Version None)
Quarter: 2004Q2

REPORT INFORMATION
  Report Type: 
  Country: None (occurrence: None)
  Receive Date: 20040601
  Receipt Date: 20040601
  Transmission Date: 20050107
  Serious: Yes (Hospitalization)
  Sender: FDA-Public Use
  Company Number: None

PATIENT
  Age: 58 Year
  Sex: Male
  Weight: 66.6788 kg

DRUGS (18)
  1. LEUKINE [Suspect]
     Indication: METASTASES TO LUNG
     Dosage: 500 MCG S/C
     Route: 058
     Dates: start: 20040504, end: 20040518
  2. LEUKINE [Suspect]
     Indication: RENAL CELL CARCINOMA STAGE UNSPECIFIED
     Dosage: 500 MCG S/C
     Route: 058
     Dates: start: 20040504, end: 20040518
  3. GEMCITABINE [Suspect]
     Indication: METASTASES TO LUNG
     Dosage: 16 M/M2
     Dates: start: 20040510
  4. GEMCITABINE [Suspect]
     Indication: RENAL CELL CARCINOMA STAGE UNSPECIFIED
     Dosage: 16 M/M2
     Dates: start: 20040510
  5. LEUCOVORIN [Suspect]
     Indication: METASTASES TO LUNG
     Dosage: 200 MG/M
     Dates: start: 20040510
  6. LEUCOVORIN [Suspect]
     Indication: RENAL CELL CARCINOMA STAGE UNSPECIFIED
     Dosage: 200 MG/M
     Dates: start: 20040510
  7. FLUOROURACIL [Suspect]
     Indication: METASTASES TO LUNG
     Dosage: 400 MG/M
     Dates: start: 20040510
  8. FLUOROURACIL [Suspect]
     Indication: RENAL CELL CARCINOMA STAGE UNSPECIFIED
     Dosage: 400 MG/M
     Dates: start: 20040510
  9. FLUOROURACIL [Suspect]
     Indication: METASTASES TO LUNG
     Dosage: 600 MG/M2
     Dates: start: 20040510
  10. FLUOROURACIL [Suspect]
     Indication: RENAL CELL CARCINOMA STAGE UNSPECIFIED
     Dosage: 600 MG/M2
     Dates: start: 20040510
  11. OXYCOD/APAP [Concomitant]
  12. LORAZEPAM [Concomitant]
  13. METFORMIN [Concomitant]
  14. AMBIEN [Concomitant]
  15. PAXIL [Concomitant]
  16. GLIPIZDE [Concomitant]
  17. COUMADIN [Concomitant]
  18. M.V.I. [Concomitant]

REACTIONS (3)
  - MALIGNANT NEOPLASM PROGRESSION [None]
  - METASTASES TO CENTRAL NERVOUS SYSTEM [None]
  - PYREXIA [None]
